FAERS Safety Report 10014674 (Version 3)
Quarter: 2014Q2

REPORT INFORMATION
  Report Type: Spontaneous
  Country: US (occurrence: US)
  Receive Date: 20140317
  Receipt Date: 20140506
  Transmission Date: 20141212
  Serious: Yes (Hospitalization)
  Sender: FDA-Public Use
  Company Number: US-BEH-2013036837

PATIENT
  Age: 53 Year
  Sex: Female

DRUGS (1)
  1. ZEMAIRA [Suspect]
     Indication: ALPHA-1 ANTI-TRYPSIN DEFICIENCY

REACTIONS (4)
  - Pneumonia [Unknown]
  - Influenza [Recovered/Resolved]
  - Dyspnoea [Unknown]
  - Malaise [Unknown]
